FAERS Safety Report 16120339 (Version 1)
Quarter: 2019Q1

REPORT INFORMATION
  Report Type: Spontaneous
  Country: PT (occurrence: PT)
  Receive Date: 20190326
  Receipt Date: 20190326
  Transmission Date: 20190418
  Serious: Yes (Hospitalization)
  Sender: FDA-Public Use
  Company Number: PHHY2019PT065075

PATIENT
  Age: 72 Year
  Sex: Female

DRUGS (3)
  1. GLUCOSAMINE [Suspect]
     Active Substance: GLUCOSAMINE
     Indication: SCIATICA
     Dosage: UNK
     Route: 065
  2. BETAMETHASONE. [Suspect]
     Active Substance: BETAMETHASONE
     Indication: SCIATICA
     Dosage: UNK
     Route: 030
  3. CALCIUM [Suspect]
     Active Substance: CALCIUM
     Indication: SCIATICA
     Dosage: UNK
     Route: 065

REACTIONS (17)
  - Electrolyte imbalance [Unknown]
  - Lacrimation increased [Unknown]
  - Muscular weakness [Unknown]
  - Product use in unapproved indication [Unknown]
  - Erythema [Unknown]
  - Hypokalaemia [Unknown]
  - Diverticulitis [Unknown]
  - Dry mouth [Unknown]
  - Hyperglycaemia [Unknown]
  - Ectopic ACTH syndrome [Unknown]
  - Balance disorder [Unknown]
  - Hypercalciuria [Unknown]
  - Metabolic alkalosis [Unknown]
  - Asthenia [Unknown]
  - Peritonitis [Unknown]
  - Face oedema [Unknown]
  - Oedema peripheral [Unknown]
